FAERS Safety Report 7339480-0 (Version None)
Quarter: 2011Q1

REPORT INFORMATION
  Report Type: 
  Country: None (occurrence: None)
  Receive Date: 20110308
  Receipt Date: 20110113
  Transmission Date: 20110831
  Serious: No
  Sender: FDA-Public Use
  Company Number: US-AMGEN-KDL443329

PATIENT
  Age: 88 Year
  Sex: Female

DRUGS (5)
  1. CALCIUM [Concomitant]
     Dosage: 1000 MG, QD
  2. HYDROCODONE BITARTRATE [Suspect]
     Indication: PAIN
  3. VITAMIN A [Concomitant]
     Dosage: 1000 IU, QD
  4. VITAMIN A [Concomitant]
     Dosage: 50000 IU, QWK
  5. PROLIA [Suspect]
     Indication: OSTEOPOROSIS POSTMENOPAUSAL
     Dosage: 60 MG, Q6MO
     Dates: start: 20100823

REACTIONS (21)
  - MYALGIA [None]
  - ABDOMINAL PAIN LOWER [None]
  - SOMNOLENCE [None]
  - GAIT DISTURBANCE [None]
  - BONE PAIN [None]
  - ARTHRALGIA [None]
  - DRY MOUTH [None]
  - ASTHENIA [None]
  - NECK PAIN [None]
  - ERYTHEMA [None]
  - WEIGHT INCREASED [None]
  - ACTIVITIES OF DAILY LIVING IMPAIRED [None]
  - MUSCULOSKELETAL PAIN [None]
  - POLLAKIURIA [None]
  - REPRODUCTIVE TRACT DISORDER [None]
  - WEIGHT DECREASED [None]
  - DENTAL CARIES [None]
  - PYREXIA [None]
  - DECREASED APPETITE [None]
  - EYE DISCHARGE [None]
  - PAIN IN EXTREMITY [None]
